FAERS Safety Report 5493946-7 (Version None)
Quarter: 2007Q4

REPORT INFORMATION
  Report Type: 
  Country: None (occurrence: None)
  Receive Date: 20071023
  Receipt Date: 20071011
  Transmission Date: 20080405
  Serious: Yes (Other)
  Sender: FDA-Public Use
  Company Number: BE-PFIZER INC-2007075575

PATIENT
  Age: 80 Year
  Sex: Female
  Weight: 63 kg

DRUGS (4)
  1. CELEBREX [Suspect]
     Indication: OSTEOARTHRITIS
     Route: 048
     Dates: start: 20070904, end: 20070904
  2. CELEBREX [Suspect]
     Indication: ARTHRALGIA
  3. LANOXIN [Concomitant]
  4. MARCUMAR [Concomitant]

REACTIONS (2)
  - CONFUSIONAL STATE [None]
  - DISORIENTATION [None]
